FAERS Safety Report 9887956 (Version 2)
Quarter: 2014Q1

REPORT INFORMATION
  Report Type: Spontaneous
  Country: BE (occurrence: BE)
  Receive Date: 20140211
  Receipt Date: 20140211
  Transmission Date: 20141002
  Serious: Yes (Life-Threatening, Hospitalization, Other)
  Sender: FDA-Public Use
  Company Number: BE-ASTELLAS-2014EU000922

PATIENT
  Age: 26 Year
  Sex: Male

DRUGS (10)
  1. PROGRAFT [Suspect]
     Indication: IMMUNOSUPPRESSION
     Dosage: 11 MG, BID
     Route: 065
  2. CELLCEPT /01275102/ [Suspect]
     Indication: IMMUNOSUPPRESSION
     Dosage: 250 MG, BID
     Route: 065
  3. MEDROL /00049601/ [Suspect]
     Indication: IMMUNOSUPPRESSION
     Dosage: 4 MG, UNKNOWN/D
     Route: 065
  4. MEDROL /00049601/ [Suspect]
     Dosage: 6 MG, UNKNOWN/D
     Route: 065
  5. RITUXIMAB [Suspect]
     Indication: IMMUNOSUPPRESSION
     Dosage: UNK
     Route: 065
  6. NYSTATIN [Concomitant]
     Dosage: UNK
     Route: 065
  7. SIMVASTATIN [Concomitant]
     Dosage: UNK
     Route: 065
  8. CALCIUM CARBONATE [Concomitant]
     Dosage: UNK
     Route: 065
  9. ALFACALCIDOL [Concomitant]
     Dosage: UNK
     Route: 065
  10. ESOMEPRAZOLE [Concomitant]
     Dosage: UNK
     Route: 065

REACTIONS (14)
  - Post transplant lymphoproliferative disorder [Unknown]
  - Epstein-Barr virus infection [Recovering/Resolving]
  - Clostridium difficile infection [Unknown]
  - Diarrhoea [Unknown]
  - Weight decreased [Unknown]
  - Leukopenia [Unknown]
  - Diabetes mellitus [Unknown]
  - Pyrexia [Unknown]
  - Abdominal pain [Unknown]
  - Oesophagitis [Unknown]
  - Dehydration [Unknown]
  - Renal impairment [Unknown]
  - Enteritis [Unknown]
  - Anaemia [Unknown]
